FAERS Safety Report 9921528 (Version 4)
Quarter: 2014Q2

REPORT INFORMATION
  Report Type: Spontaneous
  Country: US (occurrence: US)
  Receive Date: 20140225
  Receipt Date: 20140402
  Transmission Date: 20141212
  Serious: No
  Sender: FDA-Public Use
  Company Number: US-PFIZER INC-2014053145

PATIENT
  Age: 80 Year
  Sex: Male

DRUGS (5)
  1. SUTENT [Suspect]
     Indication: RENAL CANCER
     Dosage: 50 MG, UNK
     Dates: start: 20140206
  2. LEVOTHYROXINE SODIUM [Concomitant]
     Dosage: UNK
  3. TAMSULOSIN HYDROCHLORIDE [Concomitant]
     Dosage: UNK
  4. AMLODIPINE BESYLATE [Concomitant]
     Dosage: UNK
  5. HYDROCHLOROTHIAZIDE/TRIAMTERENE [Concomitant]
     Dosage: UNK

REACTIONS (10)
  - Diarrhoea [Unknown]
  - Fatigue [Unknown]
  - Glossodynia [Unknown]
  - Abdominal discomfort [Unknown]
  - Dry mouth [Unknown]
  - Swelling face [Unknown]
  - Swollen tongue [Unknown]
  - Stomatitis [Unknown]
  - Abdominal distension [Unknown]
  - Oedema peripheral [Unknown]
